FAERS Safety Report 16340129 (Version 2)
Quarter: 2019Q2

REPORT INFORMATION
  Report Type: Report from Study
  Country: None (occurrence: CZ)
  Receive Date: 20190522
  Receipt Date: 20190625
  Transmission Date: 20190711
  Serious: Yes (Other)
  Sender: FDA-Public Use
  Company Number: CZ-ABBVIE-19K-217-2787235-00

PATIENT
  Age: 42 Year
  Sex: Female
  Weight: 62 kg

DRUGS (3)
  1. METHOTREXATE. [Suspect]
     Active Substance: METHOTREXATE
     Indication: PRODUCT USED FOR UNKNOWN INDICATION
     Route: 058
     Dates: start: 20171012, end: 20190401
  2. HUMIRA [Suspect]
     Active Substance: ADALIMUMAB
     Indication: HLA-B*27 POSITIVE
  3. HUMIRA [Suspect]
     Active Substance: ADALIMUMAB
     Indication: ANKYLOSING SPONDYLITIS
     Route: 058
     Dates: start: 20171214

REACTIONS (3)
  - Secondary immunodeficiency [Recovered/Resolved]
  - Oral herpes [Recovered/Resolved]
  - Catarrh [Recovered/Resolved]

NARRATIVE: CASE EVENT DATE: 20180926
